FAERS Safety Report 8381613-1 (Version None)
Quarter: 2012Q2

REPORT INFORMATION
  Report Type: 
  Country: None (occurrence: None)
  Receive Date: 20120524
  Receipt Date: 20120516
  Transmission Date: 20120825
  Serious: Yes (Death, Other)
  Sender: FDA-Public Use
  Company Number: BR-ASTRAZENECA-2012SE32309

PATIENT

DRUGS (3)
  1. SYNAGIS [Suspect]
     Indication: PRODUCT USED FOR UNKNOWN INDICATION
     Route: 030
  2. FLU VACCINE [Concomitant]
  3. VACCINE IPAD D.T.C. (TETANUS VACCINE, DIPHTERIA VACCINE, PERTUSSIS VAC [Concomitant]

REACTIONS (3)
  - DEATH [None]
  - CONVULSION [None]
  - PYREXIA [None]
